FAERS Safety Report 4988736-5 (Version None)
Quarter: 2006Q2

REPORT INFORMATION
  Report Type: 
  Country: None (occurrence: None)
  Receive Date: 20060502
  Receipt Date: 20050815
  Transmission Date: 20061013
  Serious: Yes (Hospitalization)
  Sender: FDA-Public Use
  Company Number: US-MERCK-0508USA02993

PATIENT
  Age: 46 Year
  Sex: Female
  Weight: 127 kg

DRUGS (2)
  1. VIOXX [Suspect]
     Indication: ARTHRITIS
     Route: 048
     Dates: start: 20020101, end: 20040901
  2. ASPIRIN [Concomitant]
     Route: 065
     Dates: start: 20020101

REACTIONS (11)
  - ATELECTASIS [None]
  - CARDIOMEGALY [None]
  - CHEST PAIN [None]
  - GASTROOESOPHAGEAL REFLUX DISEASE [None]
  - HYPERLIPIDAEMIA [None]
  - HYPERTENSION [None]
  - LIVER FUNCTION TEST ABNORMAL [None]
  - MENORRHAGIA [None]
  - SLEEP APNOEA SYNDROME [None]
  - THALAMIC INFARCTION [None]
  - VENTRICULAR DYSFUNCTION [None]
